FAERS Safety Report 7351355-X (Version None)
Quarter: 2011Q1

REPORT INFORMATION
  Report Type: 
  Country: None (occurrence: None)
  Receive Date: 20110314
  Receipt Date: 20110301
  Transmission Date: 20110831
  Serious: Yes (Other)
  Sender: FDA-Public Use
  Company Number: PHHY2011BR17235

PATIENT
  Sex: Female

DRUGS (6)
  1. GLIBENCLAMIDE [Concomitant]
     Indication: DIABETES MELLITUS
     Dosage: 1 DF, QD
     Route: 048
     Dates: start: 20100101
  2. DEFLAZACORT [Concomitant]
     Indication: ARTHRITIS
  3. DIOVAN HCT [Suspect]
     Indication: HYPERTENSION
     Dosage: 1 DF, QD
     Route: 048
  4. ARAVA [Concomitant]
     Indication: ARTHRITIS
     Dosage: 1 DF, QD
     Route: 048
  5. DIOVAN HCT [Suspect]
     Dosage: 320/12,5 MG ONE TABLET DAILY
  6. SOMALGIN [Concomitant]
     Indication: CARDIAC DISORDER
     Dosage: 1 DF, QD
     Route: 048

REACTIONS (3)
  - DIABETES MELLITUS [None]
  - BLOOD PRESSURE FLUCTUATION [None]
  - HYPERTENSION [None]
